FAERS Safety Report 12427880 (Version 1)
Quarter: 2016Q2

REPORT INFORMATION
  Report Type: Spontaneous
  Country: US (occurrence: US)
  Receive Date: 20160602
  Receipt Date: 20160602
  Transmission Date: 20160815
  Serious: No
  Sender: FDA-Public Use
  Company Number: US-NOVEN PHARMACEUTICALS, INC.-US2015000196

PATIENT
  Age: 12 Year
  Sex: Male

DRUGS (6)
  1. WELLBUTRIN [Concomitant]
     Active Substance: BUPROPION HYDROCHLORIDE
     Dosage: 300 MG, QD
  2. DAYTRANA [Suspect]
     Active Substance: METHYLPHENIDATE
     Dosage: 30 MG, BID, USING TWO PATCHES
     Route: 062
     Dates: start: 20151016
  3. DAYTRANA [Suspect]
     Active Substance: METHYLPHENIDATE
     Indication: ATTENTION DEFICIT/HYPERACTIVITY DISORDER
     Dosage: 30 MG, UNK
     Route: 062
     Dates: start: 20141009, end: 20141011
  4. DAYTRANA [Suspect]
     Active Substance: METHYLPHENIDATE
     Dosage: USING 1 AND A HALF PATCH OF 30MG TOGETHER
     Route: 062
     Dates: start: 20141012, end: 20141015
  5. MELATONIN [Concomitant]
     Active Substance: MELATONIN
     Dosage: UNK, UNKNOWN
  6. INTUNIV [Concomitant]
     Active Substance: GUANFACINE HYDROCHLORIDE
     Dosage: 5 MG, QD

REACTIONS (4)
  - Wrong technique in product usage process [Not Recovered/Not Resolved]
  - Drug prescribing error [Not Recovered/Not Resolved]
  - Drug ineffective [Recovered/Resolved]
  - Overdose [Not Recovered/Not Resolved]

NARRATIVE: CASE EVENT DATE: 20141009
